FAERS Safety Report 6824255-9 (Version None)
Quarter: 2010Q3

REPORT INFORMATION
  Report Type: 
  Country: None (occurrence: None)
  Receive Date: 20100708
  Receipt Date: 20061011
  Transmission Date: 20110219
  Serious: No
  Sender: FDA-Public Use
  Company Number: US-PFIZER INC-2006126561

PATIENT
  Sex: Female
  Weight: 45.36 kg

DRUGS (11)
  1. CHANTIX [Suspect]
     Indication: SMOKING CESSATION THERAPY
     Dates: start: 20061001
  2. IBANDRONATE SODIUM [Concomitant]
  3. NORVASC [Concomitant]
  4. LIPITOR [Concomitant]
  5. OSCAL [Concomitant]
  6. PLAVIX [Concomitant]
  7. NASONEX [Concomitant]
     Route: 045
  8. POTASSIUM CHLORIDE [Concomitant]
  9. ZOLOFT [Concomitant]
  10. TRICOR [Concomitant]
  11. MAXIDEX [Concomitant]

REACTIONS (3)
  - INCREASED APPETITE [None]
  - NAUSEA [None]
  - VOMITING [None]
